FAERS Safety Report 22625618 (Version 1)
Quarter: 2023Q2

REPORT INFORMATION
  Report Type: Spontaneous
  Country: IT (occurrence: IT)
  Receive Date: 20230621
  Receipt Date: 20230621
  Transmission Date: 20230722
  Serious: Yes (Other)
  Sender: FDA-Public Use
  Company Number: None

PATIENT
  Age: 89 Year
  Sex: Female

DRUGS (4)
  1. PAXLOVID [Suspect]
     Active Substance: NIRMATRELVIR\RITONAVIR
     Indication: COVID-19
     Dosage: [PF-07321332 300 MG]/[RITONAVIR 100 MG]; DOSAGE TEXT:150 MG 2 CP + 100 MG 1 CP X 2X/DAY
     Route: 048
     Dates: start: 20230426, end: 20230426
  2. RISPERDAL [Suspect]
     Active Substance: RISPERIDONE
     Indication: Vascular dementia
     Dosage: UNK
  3. ZOLOFT [Concomitant]
     Active Substance: SERTRALINE HYDROCHLORIDE
     Indication: Depression
     Dosage: UNK
  4. ROSUVASTATIN [Concomitant]
     Active Substance: ROSUVASTATIN
     Indication: Hypercholesterolaemia
     Dosage: UNK

REACTIONS (3)
  - Electrocardiogram QT prolonged [Recovered/Resolved]
  - Chest pain [Recovered/Resolved]
  - Bundle branch block left [Recovered/Resolved]

NARRATIVE: CASE EVENT DATE: 20230427
